FAERS Safety Report 10235342 (Version 1)
Quarter: 2014Q2

REPORT INFORMATION
  Report Type: Spontaneous
  Country: US (occurrence: US)
  Receive Date: 20140613
  Receipt Date: 20140613
  Transmission Date: 20141212
  Serious: No
  Sender: FDA-Public Use
  Company Number: US-PFIZER INC-2014157221

PATIENT
  Age: 59 Year
  Sex: Male

DRUGS (2)
  1. AMLODIPINE BESILATE [Suspect]
     Dosage: 10 MG, 1X/DAY (AMLODIPINE IN THE MORNING)
  2. LOSARTAN POTASSIUM [Suspect]
     Dosage: 100 MG, 1X/DAY (LOSARTIN IN THE EVENING)

REACTIONS (3)
  - Somnolence [Unknown]
  - Sedation [Unknown]
  - Lethargy [Unknown]
